FAERS Safety Report 9802736 (Version 1)
Quarter: 2014Q1

REPORT INFORMATION
  Report Type: Spontaneous
  Country: US (occurrence: US)
  Receive Date: 20140108
  Receipt Date: 20140108
  Transmission Date: 20141002
  Serious: No
  Sender: FDA-Public Use
  Company Number: US-009507513-1401USA002212

PATIENT
  Age: 53 Year
  Sex: Male

DRUGS (6)
  1. JANUVIA [Suspect]
     Indication: TYPE 2 DIABETES MELLITUS
     Dosage: UNK
     Route: 048
     Dates: start: 201308
  2. JANUVIA [Suspect]
     Dosage: UNK
     Route: 048
  3. METFORMIN [Concomitant]
     Dosage: FREQUENCY: 1 MORNING AND 2 AT NIGHT.
  4. RAMPRIL [Concomitant]
     Dosage: FREQUENCY: 5MGX1
  5. WELCHOL [Concomitant]
     Dosage: FREQUENCY: 3 MORNING AND 3 NIGHT
  6. ASPIRIN [Concomitant]
     Dosage: BABY ASPIRIN, 81MG 1X.

REACTIONS (3)
  - Heart rate increased [Unknown]
  - Cold sweat [Unknown]
  - Headache [Unknown]
